FAERS Safety Report 7265140-0 (Version None)
Quarter: 2011Q1

REPORT INFORMATION
  Report Type: 
  Country: None (occurrence: None)
  Receive Date: 20110131
  Receipt Date: 20110126
  Transmission Date: 20110831
  Serious: Yes (Death, Life-Threatening, Hospitalization)
  Sender: FDA-Public Use
  Company Number: PHHY2011EC06333

PATIENT
  Sex: Female

DRUGS (1)
  1. RASILEZ [Suspect]
     Indication: HYPERTENSION
     Dosage: 300 MG, DAILY
     Route: 048
     Dates: start: 20100101, end: 20110110

REACTIONS (6)
  - NEOPLASM PROGRESSION [None]
  - UTERINE CANCER [None]
  - METASTASES TO LUNG [None]
  - ABDOMINAL PAIN UPPER [None]
  - OVARIAN CANCER [None]
  - CHEST PAIN [None]
